FAERS Safety Report 13398896 (Version 3)
Quarter: 2017Q2

REPORT INFORMATION
  Report Type: Spontaneous
  Country: TW (occurrence: TW)
  Receive Date: 20170404
  Receipt Date: 20170505
  Transmission Date: 20170830
  Serious: Yes (Other)
  Sender: FDA-Public Use
  Company Number: TW-AMGEN-TWNSP2017050527

PATIENT
  Age: 27 Year
  Sex: Male

DRUGS (5)
  1. TRAMADOL. [Concomitant]
     Active Substance: TRAMADOL
     Indication: ANKYLOSING SPONDYLITIS
     Dosage: 1 TABLET PRN
     Route: 048
  2. ENBREL [Suspect]
     Active Substance: ETANERCEPT
     Indication: ANKYLOSING SPONDYLITIS
     Dosage: 25 MG, BIW
     Route: 058
     Dates: start: 20160217
  3. CELEBREX [Concomitant]
     Active Substance: CELECOXIB
     Indication: ANKYLOSING SPONDYLITIS
     Dosage: 400 MG (2 TABLETS) BID
     Route: 048
  4. SOLAXIN [Concomitant]
     Indication: ANKYLOSING SPONDYLITIS
     Dosage: 200 MG (1 TABLET) BID
     Route: 048
  5. SALAZINE [Concomitant]
     Active Substance: SULFASALAZINE
     Indication: ANKYLOSING SPONDYLITIS
     Dosage: 1 MG (2 TABLETS) BID
     Route: 048

REACTIONS (2)
  - Hydronephrosis [Recovering/Resolving]
  - Ureterolithiasis [Recovering/Resolving]
